FAERS Safety Report 12877059 (Version 2)
Quarter: 2017Q1

REPORT INFORMATION
  Report Type: Spontaneous
  Country: US (occurrence: US)
  Receive Date: 20161024
  Receipt Date: 20170317
  Transmission Date: 20170428
  Serious: Yes (Disabling, Other)
  Sender: FDA-Public Use
  Company Number: US-PFIZER INC-2016492720

PATIENT
  Age: 45 Year
  Sex: Male
  Weight: 136 kg

DRUGS (2)
  1. LYRICA [Suspect]
     Active Substance: PREGABALIN
     Indication: HYPOAESTHESIA
  2. LYRICA [Suspect]
     Active Substance: PREGABALIN
     Indication: NEUROPATHY PERIPHERAL
     Dosage: 300 MG, 3X/DAY

REACTIONS (10)
  - Skull fracture [Recovered/Resolved]
  - Accident [Unknown]
  - Fall [Unknown]
  - Intervertebral disc protrusion [Unknown]
  - Haemorrhage [Recovered/Resolved]
  - Upper limb fracture [Unknown]
  - Ankle fracture [Unknown]
  - Memory impairment [Recovering/Resolving]
  - Rib fracture [Recovered/Resolved]
  - Impaired work ability [Unknown]

NARRATIVE: CASE EVENT DATE: 201503
